FAERS Safety Report 8299694-2 (Version None)
Quarter: 2012Q2

REPORT INFORMATION
  Report Type: 
  Country: None (occurrence: None)
  Receive Date: 20120419
  Receipt Date: 20120410
  Transmission Date: 20120825
  Serious: Yes (Death, Hospitalization)
  Sender: FDA-Public Use
  Company Number: BE-ROCHE-1010238

PATIENT
  Sex: Male

DRUGS (1)
  1. MIRCERA [Suspect]
     Indication: RENAL FAILURE
     Dates: start: 20110701

REACTIONS (6)
  - FALL [None]
  - RESPIRATORY DISORDER [None]
  - SKIN DISORDER [None]
  - GENERAL PHYSICAL HEALTH DETERIORATION [None]
  - LUNG INFECTION [None]
  - BRONCHOPNEUMONIA [None]
